FAERS Safety Report 7504383-5 (Version None)
Quarter: 2011Q2

REPORT INFORMATION
  Report Type: 
  Country: None (occurrence: None)
  Receive Date: 20110525
  Receipt Date: 20110518
  Transmission Date: 20111010
  Serious: Yes (Other)
  Sender: FDA-Public Use
  Company Number: AR-AMGEN-ARGSP2011024340

PATIENT
  Age: 41 Year

DRUGS (3)
  1. ENBREL [Suspect]
     Dosage: UNK
  2. CORTICOSTEROIDS [Concomitant]
     Dosage: UNK
  3. ENBREL [Suspect]
     Indication: RHEUMATOID ARTHRITIS
     Dosage: UNK
     Dates: start: 20060901

REACTIONS (3)
  - OCULAR HYPERAEMIA [None]
  - EPISCLERITIS [None]
  - INTRAOCULAR PRESSURE INCREASED [None]
